FAERS Safety Report 4797107-6 (Version None)
Quarter: 2005Q3

REPORT INFORMATION
  Report Type: 
  Country: None (occurrence: None)
  Receive Date: 20050916
  Receipt Date: 20050419
  Transmission Date: 20060218
  Serious: Yes (Other)
  Sender: FDA-Public Use
  Company Number: US-JNJFOC-20050302847

PATIENT
  Age: 29 Year
  Sex: Female
  Weight: 94.3482 kg

DRUGS (3)
  1. TOPAMAX [Suspect]
     Indication: MIGRAINE PROPHYLAXIS
     Dosage: 25 MG, 1 IN 1 DAY, ORAL
     Route: 048
     Dates: start: 20050225, end: 20050304
  2. TOPAMAX [Suspect]
     Indication: MIGRAINE PROPHYLAXIS
     Dosage: 25 MG, 1 IN 1 DAY, ORAL
     Route: 048
     Dates: start: 20050305, end: 20050307
  3. YASMIN (PETIBELLE FILMTABLETTEN) [Concomitant]

REACTIONS (5)
  - DIPLOPIA [None]
  - EYE SWELLING [None]
  - HYPERSENSITIVITY [None]
  - VISION BLURRED [None]
  - VISUAL ACUITY REDUCED [None]
